FAERS Safety Report 7559210-7 (Version None)
Quarter: 2011Q2

REPORT INFORMATION
  Report Type: 
  Country: None (occurrence: None)
  Receive Date: 20110525
  Receipt Date: 20110309
  Transmission Date: 20111010
  Serious: No
  Sender: FDA-Public Use
  Company Number: 324781

PATIENT
  Age: 53 Year
  Sex: Female

DRUGS (1)
  1. VICTOZA [Suspect]
     Indication: TYPE 2 DIABETES MELLITUS
     Dosage: SUBCUTANEOUS
     Route: 058
     Dates: start: 20110126, end: 20110201

REACTIONS (4)
  - ARTHRALGIA [None]
  - BACK PAIN [None]
  - PAIN IN EXTREMITY [None]
  - MYALGIA [None]
